FAERS Safety Report 8024670-4 (Version None)
Quarter: 2011Q4

REPORT INFORMATION
  Report Type: 
  Country: None (occurrence: None)
  Receive Date: 20111130
  Receipt Date: 20110429
  Transmission Date: 20120403
  Serious: Yes (Other)
  Sender: FDA-Public Use
  Company Number: PHHY2011US37318

PATIENT
  Age: 70 Year
  Sex: Female

DRUGS (5)
  1. CLONIDINE [Concomitant]
  2. LEVOTHROID [Concomitant]
  3. ASPIRIN [Concomitant]
  4. TEKTURNA [Suspect]
     Dosage: 150 MG ; 300 MG, ONE HALF IN MORNING AND ONE HALF IN EVENING ; ONE HALF IN EVENING
  5. HYDROCHLOROTHIAZIDE [Concomitant]

REACTIONS (7)
  - LIP SWELLING [None]
  - LIP BLISTER [None]
  - LIP EXFOLIATION [None]
  - PRURITUS [None]
  - INCORRECT DOSE ADMINISTERED [None]
  - SECRETION DISCHARGE [None]
  - RASH [None]
